FAERS Safety Report 23078241 (Version 1)
Quarter: 2023Q4

REPORT INFORMATION
  Report Type: Spontaneous
  Country: US (occurrence: US)
  Receive Date: 20231018
  Receipt Date: 20231018
  Transmission Date: 20240110
  Serious: No
  Sender: FDA-Public Use
  Company Number: US-OPELLA-2023OHG005926

PATIENT
  Sex: Female

DRUGS (3)
  1. DIPHENHYDRAMINE [Suspect]
     Active Substance: DIPHENHYDRAMINE
     Route: 065
  2. GABAPENTIN [Concomitant]
     Active Substance: GABAPENTIN
     Route: 065
  3. TRAZODONE [Concomitant]
     Active Substance: TRAZODONE HYDROCHLORIDE
     Route: 065

REACTIONS (1)
  - Fall [Unknown]
